FAERS Safety Report 15803560 (Version 1)
Quarter: 2019Q1

REPORT INFORMATION
  Report Type: Spontaneous
  Country: US (occurrence: US)
  Receive Date: 20190109
  Receipt Date: 20190109
  Transmission Date: 20190417
  Serious: Yes (Hospitalization)
  Sender: FDA-Public Use
  Company Number: None

PATIENT
  Age: 9 Month
  Sex: Female
  Weight: 7.65 kg

DRUGS (1)
  1. BABY TEETHING (HYLAND HOMEOPATHIC) [Suspect]
     Active Substance: HOMEOPATHICS
     Indication: TEETHING
     Dosage: ?          QUANTITY:125 TABLET(S);OTHER FREQUENCY:AS NEEDED;?
     Route: 048

REACTIONS (3)
  - Seizure like phenomena [None]
  - Recalled product administered [None]
  - Product quality issue [None]

NARRATIVE: CASE EVENT DATE: 20181222
